FAERS Safety Report 16014456 (Version 1)
Quarter: 2019Q1

REPORT INFORMATION
  Report Type: Spontaneous
  Country: US (occurrence: US)
  Receive Date: 20190227
  Receipt Date: 20190227
  Transmission Date: 20190418
  Serious: No
  Sender: FDA-Public Use
  Company Number: US-ELI_LILLY_AND_COMPANY-US201902012753

PATIENT
  Age: 79 Year
  Sex: Female

DRUGS (1)
  1. TRULICITY [Suspect]
     Active Substance: DULAGLUTIDE
     Indication: PRODUCT USED FOR UNKNOWN INDICATION
     Dosage: UNK, UNKNOWN
     Route: 065

REACTIONS (5)
  - Injection site pruritus [Recovered/Resolved]
  - Injection site swelling [Recovered/Resolved]
  - Blood glucose increased [Not Recovered/Not Resolved]
  - Drug ineffective [Not Recovered/Not Resolved]
  - Wrong technique in product usage process [Recovering/Resolving]

NARRATIVE: CASE EVENT DATE: 201902
